FAERS Safety Report 7968924-6 (Version None)
Quarter: 2011Q4

REPORT INFORMATION
  Report Type: 
  Country: None (occurrence: None)
  Receive Date: 20111209
  Receipt Date: 20111206
  Transmission Date: 20120403
  Serious: Yes (Other)
  Sender: FDA-Public Use
  Company Number: US-BAYER-2011-094285

PATIENT
  Age: 29 Year
  Sex: Female
  Weight: 64.399 kg

DRUGS (2)
  1. MAGNEVIST [Suspect]
     Indication: VERTIGO
  2. MAGNEVIST [Suspect]
     Indication: NUCLEAR MAGNETIC RESONANCE IMAGING BRAIN
     Dosage: 50 CC VIAL; PATIENT DOSE: 13CC
     Route: 042
     Dates: start: 20111003, end: 20111003

REACTIONS (4)
  - PRURITUS [None]
  - COUGH [None]
  - RHINORRHOEA [None]
  - URTICARIA [None]
